FAERS Safety Report 14220239 (Version 2)
Quarter: 2018Q1

REPORT INFORMATION
  Report Type: Spontaneous
  Country: US (occurrence: US)
  Receive Date: 20171123
  Receipt Date: 20180119
  Transmission Date: 20180508
  Serious: No
  Sender: FDA-Public Use
  Company Number: US-JNJFOC-20171034003

PATIENT
  Sex: Female
  Weight: 58.97 kg

DRUGS (4)
  1. TOPAMAX [Suspect]
     Active Substance: TOPIRAMATE
     Indication: MIGRAINE PROPHYLAXIS
     Route: 048
  2. TOPAMAX [Suspect]
     Active Substance: TOPIRAMATE
     Indication: MIGRAINE PROPHYLAXIS
     Dosage: ONCE A DAY AT BED TIME
     Route: 048
     Dates: start: 2007
  3. PRAVACHOL [Concomitant]
     Active Substance: PRAVASTATIN SODIUM
     Route: 065
  4. MAGNESIUM [Concomitant]
     Active Substance: MAGNESIUM
     Route: 065

REACTIONS (5)
  - Emotional disorder [Not Recovered/Not Resolved]
  - Mental disorder [Unknown]
  - Headache [Not Recovered/Not Resolved]
  - Dissociation [Not Recovered/Not Resolved]
  - Concussion [Unknown]

NARRATIVE: CASE EVENT DATE: 2013
